FAERS Safety Report 7178189-3 (Version None)
Quarter: 2010Q4

REPORT INFORMATION
  Report Type: 
  Country: None (occurrence: None)
  Receive Date: 20101220
  Receipt Date: 20101210
  Transmission Date: 20110411
  Serious: Yes (Other)
  Sender: FDA-Public Use
  Company Number: US-SANOFI-AVENTIS-2010SA075376

PATIENT
  Sex: Female

DRUGS (1)
  1. LANTUS [Suspect]
     Indication: TYPE 2 DIABETES MELLITUS
     Dosage: IN THE EVENING DOSE:22 UNIT(S)
     Route: 058
     Dates: start: 20080101

REACTIONS (2)
  - EYE SWELLING [None]
  - RETINAL DISORDER [None]
